FAERS Safety Report 7954287-9 (Version None)
Quarter: 2011Q4

REPORT INFORMATION
  Report Type: 
  Country: None (occurrence: None)
  Receive Date: 20111202
  Receipt Date: 20111129
  Transmission Date: 20120403
  Serious: Yes (Other)
  Sender: FDA-Public Use
  Company Number: US-PFIZER INC-2011291465

PATIENT
  Sex: Male
  Weight: 72.562 kg

DRUGS (1)
  1. GEODON [Suspect]
     Indication: AUTISM
     Dosage: 40 MG, 1X/DAY
     Route: 048
     Dates: start: 20091001

REACTIONS (2)
  - SINUS TACHYCARDIA [None]
  - HYPERTENSION [None]
